FAERS Safety Report 23444671 (Version 1)
Quarter: 2024Q1

REPORT INFORMATION
  Report Type: Spontaneous
  Country: US (occurrence: None)
  Receive Date: 20240125
  Receipt Date: 20240125
  Transmission Date: 20240410
  Serious: Yes (Death)
  Sender: FDA-Public Use
  Company Number: None

PATIENT
  Age: 69 Year
  Sex: Female
  Weight: 90.7 kg

DRUGS (11)
  1. TACROLIMUS [Suspect]
     Active Substance: TACROLIMUS
     Indication: Renal transplant
     Dosage: FREQUENCY : TWICE A DAY;?
     Route: 048
     Dates: start: 20220620, end: 20231226
  2. MYCOPHENOLIC ACID [Suspect]
     Active Substance: MYCOPHENOLIC ACID
     Indication: Renal transplant
     Dosage: FREQUENCY : TWICE A DAY;?
     Route: 048
     Dates: start: 20220523, end: 20231226
  3. AMIODARONE [Concomitant]
     Active Substance: AMIODARONE
     Dates: start: 20220425, end: 20231226
  4. AMLODIPINE [Concomitant]
     Active Substance: AMLODIPINE BESYLATE
     Dates: start: 20221013, end: 20231226
  5. ELIQUIS [Concomitant]
     Active Substance: APIXABAN
     Dates: start: 20220426, end: 20231226
  6. FUROSEMIDE [Concomitant]
     Active Substance: FUROSEMIDE
     Dates: start: 20221221, end: 20231226
  7. METOPROLOL SUCCINATE [Concomitant]
     Active Substance: METOPROLOL SUCCINATE
     Dates: start: 20220531, end: 20231226
  8. PREDNISONE [Concomitant]
     Active Substance: PREDNISONE
     Dates: start: 20220620, end: 20231226
  9. Aspirin 81 mg Chewable Tablet [Concomitant]
     Dates: start: 20200414, end: 20231226
  10. Magnesium 500 mg [Concomitant]
     Dates: start: 20200414, end: 20231226
  11. Multivitamin Tablet [Concomitant]
     Dates: start: 20200414, end: 20231226

REACTIONS (2)
  - Transplant [None]
  - Disease progression [None]

NARRATIVE: CASE EVENT DATE: 20231226
